FAERS Safety Report 15498459 (Version 3)
Quarter: 2018Q4

REPORT INFORMATION
  Report Type: Report from Study
  Country: None (occurrence: DE)
  Receive Date: 20181015
  Receipt Date: 20181128
  Transmission Date: 20190205
  Serious: Yes (Hospitalization, Other)
  Sender: FDA-Public Use
  Company Number: DE-ABBVIE-18S-062-2517842-00

PATIENT
  Sex: Female

DRUGS (12)
  1. DUODOPA [Suspect]
     Active Substance: CARBIDOPA\LEVODOPA
     Indication: PARKINSON^S DISEASE
     Dosage: MD 3.0 ML, CRD 5.7 ML/HR, CRN 4.0 ML/HR, ED 5 ML
     Route: 050
     Dates: start: 20180507
  2. TAVOR (LORAZEPAM) [Concomitant]
     Active Substance: LORAZEPAM
     Indication: ANXIETY
     Dosage: REDUCED DUE TO EXCESSIVE DAYTIME SLEEPINESS?0.5
     Route: 065
  3. PANTOZOL [Concomitant]
     Active Substance: PANTOPRAZOLE SODIUM
     Indication: PRODUCT USED FOR UNKNOWN INDICATION
     Route: 065
  4. MADOPAR LT [Concomitant]
     Active Substance: BENSERAZIDE HYDROCHLORIDE\LEVODOPA
     Indication: AKINESIA
     Dosage: UP TO 4X1 TABLET AS NEEDED
     Route: 065
  5. NOVAMINSULFON [Concomitant]
     Active Substance: METAMIZOLE
     Indication: ABDOMINAL PAIN
     Dosage: UP TO 3X30 LICHTENSTEIN DROPS AS NEEDED
     Route: 065
  6. MOVICOL SACHETS [Concomitant]
     Indication: PRODUCT USED FOR UNKNOWN INDICATION
     Route: 065
  7. TAVOR (LORAZEPAM) [Concomitant]
     Active Substance: LORAZEPAM
     Indication: AGITATION
     Dosage: AS NEEDED UP TO 2X1 TABLET
     Route: 065
     Dates: start: 20180420
  8. HEXAL [Concomitant]
     Indication: PRODUCT USED FOR UNKNOWN INDICATION
     Route: 065
  9. VITAMIN B12 [Concomitant]
     Active Substance: CYANOCOBALAMIN
     Indication: PRODUCT USED FOR UNKNOWN INDICATION
     Route: 065
  10. MADOPAR DEPOT [Concomitant]
     Active Substance: BENSERAZIDE HYDROCHLORIDE\LEVODOPA
     Indication: PRODUCT USED FOR UNKNOWN INDICATION
     Dosage: 100/25MG
     Route: 065
  11. OTRIVEN [Concomitant]
     Active Substance: XYLOMETAZOLINE HYDROCHLORIDE
     Indication: NASAL OBSTRUCTION
     Dosage: AS NEEDED
     Route: 065
  12. LORAZEPAM. [Concomitant]
     Active Substance: LORAZEPAM
     Indication: PRODUCT USED FOR UNKNOWN INDICATION
     Dosage: 0.5
     Route: 065

REACTIONS (25)
  - Gastritis [Unknown]
  - Pain in extremity [Unknown]
  - Bedridden [Unknown]
  - Pain [Unknown]
  - Vitamin B12 deficiency [Unknown]
  - Cerebral disorder [Unknown]
  - Syncope [Recovering/Resolving]
  - Oesophagitis [Unknown]
  - Muscle spasms [Not Recovered/Not Resolved]
  - Visual impairment [Unknown]
  - Somnolence [Unknown]
  - Epilepsy [Unknown]
  - Nervous system disorder [Unknown]
  - Spinal osteoarthritis [Unknown]
  - Osteoarthritis [Unknown]
  - Osteochondrosis [Unknown]
  - Cerebral artery stenosis [Unknown]
  - Mood disorder due to a general medical condition [Unknown]
  - On and off phenomenon [Recovering/Resolving]
  - Drug effect variable [Unknown]
  - Gastric disorder [Unknown]
  - White matter lesion [Unknown]
  - Decreased appetite [Unknown]
  - Blood pressure increased [Not Recovered/Not Resolved]
  - Dyskinesia [Unknown]

NARRATIVE: CASE EVENT DATE: 2018
